FAERS Safety Report 6218883-1 (Version None)
Quarter: 2009Q2

REPORT INFORMATION
  Report Type: 
  Country: None (occurrence: None)
  Receive Date: 20090608
  Receipt Date: 20090608
  Transmission Date: 20091009
  Serious: Yes (Hospitalization)
  Sender: FDA-Public Use
  Company Number: DE-ABBOTT-09P-062-0570699-00

PATIENT
  Sex: Male

DRUGS (18)
  1. HUMIRA [Suspect]
     Indication: CROHN'S DISEASE
     Route: 058
  2. URSO FALK [Concomitant]
     Indication: DRUG USE FOR UNKNOWN INDICATION
  3. IRON [Concomitant]
     Indication: DRUG USE FOR UNKNOWN INDICATION
     Route: 041
  4. VITAMIN E [Concomitant]
     Indication: DRUG USE FOR UNKNOWN INDICATION
     Route: 041
  5. PREDNISON [Concomitant]
     Indication: DRUG USE FOR UNKNOWN INDICATION
  6. MESALAZIN [Concomitant]
     Indication: DRUG USE FOR UNKNOWN INDICATION
     Route: 054
  7. REMICADE [Concomitant]
     Indication: DRUG USE FOR UNKNOWN INDICATION
     Dosage: 300 MG
     Dates: start: 20071102
  8. CLEMASTINE FUMARATE [Concomitant]
     Indication: DRUG USE FOR UNKNOWN INDICATION
  9. ENTOCORT EC [Concomitant]
     Indication: DRUG USE FOR UNKNOWN INDICATION
  10. MUCOFALK [Concomitant]
     Indication: DRUG USE FOR UNKNOWN INDICATION
     Dosage: BAGS
  11. VITAMIN D [Concomitant]
     Indication: DRUG USE FOR UNKNOWN INDICATION
  12. INCENSE [Concomitant]
     Indication: DRUG USE FOR UNKNOWN INDICATION
  13. MUTAFLOR [Concomitant]
     Indication: DRUG USE FOR UNKNOWN INDICATION
  14. MUTAFLOR [Concomitant]
  15. MUTAFLOR [Concomitant]
  16. CINNAMOMUM HOMACCORD [Concomitant]
     Indication: DRUG USE FOR UNKNOWN INDICATION
  17. ORTHOEXPERT NUTRI BASIC [Concomitant]
     Indication: DRUG USE FOR UNKNOWN INDICATION
     Dosage: 2 CAPSULES PER DAY
  18. DHEA [Concomitant]
     Indication: DRUG USE FOR UNKNOWN INDICATION

REACTIONS (23)
  - ANORECTAL DISCOMFORT [None]
  - ASTHENIA [None]
  - BACTERIAL INFECTION [None]
  - CACHEXIA [None]
  - CHOLANGITIS SCLEROSING [None]
  - CONJUNCTIVITIS BACTERIAL [None]
  - CROHN'S DISEASE [None]
  - DEHYDRATION [None]
  - DIARRHOEA HAEMORRHAGIC [None]
  - FLATULENCE [None]
  - GASTRIC ULCER [None]
  - GASTROINTESTINAL HAEMORRHAGE [None]
  - GASTROINTESTINAL INFLAMMATION [None]
  - INFECTION [None]
  - IRON DEFICIENCY ANAEMIA [None]
  - LEFT VENTRICULAR HYPERTROPHY [None]
  - METASTASES TO LIVER [None]
  - METASTASES TO PERITONEUM [None]
  - NASAL MUCOSAL DISORDER [None]
  - NEUROENDOCRINE CARCINOMA [None]
  - PANCREATIC INSUFFICIENCY [None]
  - SINUS TACHYCARDIA [None]
  - TRANSAMINASES INCREASED [None]
